FAERS Safety Report 15175616 (Version 6)
Quarter: 2020Q3

REPORT INFORMATION
  Report Type: Report from Study
  Country: SG (occurrence: SG)
  Receive Date: 20180720
  Receipt Date: 20181002
  Transmission Date: 20201104
  Serious: Yes (Hospitalization)
  Sender: FDA-Public Use
  Company Number: SG-JNJFOC-20180717982

PATIENT
  Age: 73 Year
  Sex: Female
  Weight: 44.3 kg

DRUGS (1)
  1. DARATUMUMAB [Suspect]
     Active Substance: DARATUMUMAB
     Indication: ANGIOCENTRIC LYMPHOMA
     Route: 042
     Dates: start: 20180514, end: 20180703

REACTIONS (2)
  - Hepatitis infectious mononucleosis [Recovered/Resolved]
  - Epstein-Barr virus infection [Not Recovered/Not Resolved]

NARRATIVE: CASE EVENT DATE: 20180710
